FAERS Safety Report 8554690-2 (Version None)
Quarter: 2012Q3

REPORT INFORMATION
  Report Type: 
  Country: None (occurrence: None)
  Receive Date: 20120731
  Receipt Date: 20120728
  Transmission Date: 20120928
  Serious: Yes (Other)
  Sender: FDA-Public Use
  Company Number: PHEH2012US014842

PATIENT
  Age: 86 Year
  Sex: Female

DRUGS (1)
  1. EXELON [Suspect]

REACTIONS (2)
  - APHASIA [None]
  - DISEASE PROGRESSION [None]
